FAERS Safety Report 19509239 (Version 2)
Quarter: 2021Q4

REPORT INFORMATION
  Report Type: Spontaneous
  Country: US (occurrence: US)
  Receive Date: 20210709
  Receipt Date: 20211105
  Transmission Date: 20220303
  Serious: No
  Sender: FDA-Public Use
  Company Number: US-VIFOR (INTERNATIONAL) INC.-VIT-2021-05283

PATIENT
  Age: 60 Year
  Sex: Female
  Weight: 50 kg

DRUGS (6)
  1. MIRCERA [Suspect]
     Active Substance: METHOXY POLYETHYLENE GLYCOL-EPOETIN BETA
     Indication: Nephrogenic anaemia
     Dosage: TOTAL NUMBER OF DOSE 1, DOSE CATEGORY:DOSE 1 ONE TIME DOSE
     Route: 058
     Dates: start: 20210506, end: 20210506
  2. VENOFER [Suspect]
     Active Substance: IRON SUCROSE
     Indication: Product used for unknown indication
     Route: 040
     Dates: start: 20210114
  3. VENOFER [Suspect]
     Active Substance: IRON SUCROSE
     Dosage: ONE TIME DOSE
     Route: 040
     Dates: start: 20210506, end: 202105
  4. VENOFER [Suspect]
     Active Substance: IRON SUCROSE
     Route: 040
     Dates: start: 20210629
  5. CALCITRIOL [Concomitant]
     Active Substance: CALCITRIOL
     Route: 048
     Dates: start: 20210405
  6. LIDOCAINE [Concomitant]
     Active Substance: LIDOCAINE
     Indication: Haemodialysis
     Dosage: APPLY SMALL AMOUNT TO DIALYSIS AREA 1/2 TO 1 HOUR PRIOR TO END OF HAEMODIALYSIS TREATMENT
     Route: 061
     Dates: start: 20210405

REACTIONS (7)
  - Drug hypersensitivity [Recovered/Resolved]
  - Headache [Recovered/Resolved]
  - Pain [Recovered/Resolved]
  - Chest pain [Recovered/Resolved]
  - Hypertension [Recovered/Resolved]
  - Bone pain [Recovered/Resolved]
  - Myalgia [Recovered/Resolved]

NARRATIVE: CASE EVENT DATE: 20210506
